FAERS Safety Report 10023530 (Version 1)
Quarter: 2014Q1

REPORT INFORMATION
  Report Type: Spontaneous
  Country: US (occurrence: None)
  Receive Date: 20140319
  Receipt Date: 20140319
  Transmission Date: 20141002
  Serious: Yes (Life-Threatening, Disabling)
  Sender: FDA-Public Use
  Company Number: None

PATIENT
  Age: 55 Year
  Sex: Male
  Weight: 124.74 kg

DRUGS (4)
  1. ANDROGEL [Suspect]
     Indication: BLOOD TESTOSTERONE DECREASED
     Dosage: 4 PUMPS ONCE DAILY APPLIED TO A SURFACE, USUALLY THE SKIN
     Route: 061
     Dates: start: 20080620, end: 20140317
  2. ANDROGEL [Suspect]
     Indication: LOSS OF LIBIDO
     Dosage: 4 PUMPS ONCE DAILY APPLIED TO A SURFACE, USUALLY THE SKIN
     Route: 061
     Dates: start: 20080620, end: 20140317
  3. ANDROGEL [Suspect]
     Dosage: 4 PUMPS ONCE DAILY APPLIED TO A SURFACE, USUALLY THE SKIN
     Route: 061
     Dates: start: 20080620, end: 20140317
  4. ANDROGEL [Suspect]
     Dosage: 4 PUMPS ONCE DAILY APPLIED TO A SURFACE, USUALLY THE SKIN
     Route: 061
     Dates: start: 20080620, end: 20140317

REACTIONS (9)
  - Pain in extremity [None]
  - Pain in extremity [None]
  - Chest pain [None]
  - Muscle rigidity [None]
  - Burning sensation [None]
  - Dyspnoea [None]
  - Loss of consciousness [None]
  - Myalgia [None]
  - Bundle branch block right [None]
